FAERS Safety Report 7450974-X (Version None)
Quarter: 2011Q2

REPORT INFORMATION
  Report Type: 
  Country: None (occurrence: None)
  Receive Date: 20110502
  Receipt Date: 20110427
  Transmission Date: 20111010
  Serious: Yes (Death)
  Sender: FDA-Public Use
  Company Number: GB-ROCHE-760373

PATIENT
  Sex: Female
  Weight: 56.2 kg

DRUGS (2)
  1. CAPECITABINE [Suspect]
     Route: 048
     Dates: start: 20100920, end: 20101126
  2. OXALIPLATIN [Suspect]
     Route: 042
     Dates: start: 20100920, end: 20101126

REACTIONS (4)
  - DIARRHOEA [None]
  - NAUSEA [None]
  - VOMITING [None]
  - DEHYDRATION [None]
